FAERS Safety Report 7094779-0 (Version None)
Quarter: 2010Q4

REPORT INFORMATION
  Report Type: 
  Country: None (occurrence: None)
  Receive Date: 20101110
  Receipt Date: 20101101
  Transmission Date: 20110411
  Serious: Yes (Hospitalization, Other)
  Sender: FDA-Public Use
  Company Number: JO-MERCK-1011USA00070

PATIENT
  Age: 50 Year
  Sex: Female

DRUGS (3)
  1. JANUMET [Suspect]
     Indication: TYPE 2 DIABETES MELLITUS
     Route: 048
  2. SIMVASTATIN [Concomitant]
     Route: 048
  3. VASOTEC [Concomitant]
     Route: 048

REACTIONS (2)
  - ABDOMINAL PAIN [None]
  - LACTIC ACIDOSIS [None]
